FAERS Safety Report 9340483 (Version 4)
Quarter: 2013Q3

REPORT INFORMATION
  Report Type: Report from Study
  Country: US (occurrence: US)
  Receive Date: 20130610
  Receipt Date: 20130725
  Transmission Date: 20140515
  Serious: No
  Sender: FDA-Public Use
  Company Number: US-VERTEX PHARMACEUTICALS INC-2013-006866

PATIENT
  Age: 55 Year
  Sex: Female
  Weight: 54 kg

DRUGS (3)
  1. VX-950 (TELAPREVIR) [Suspect]
     Indication: HEPATITIS C
     Dosage: 750 MG, TID
     Route: 048
     Dates: start: 20130606
  2. COPEGUS [Suspect]
     Indication: HEPATITIS C
     Dosage: 600 MG AM, 400 MG PM
     Dates: start: 20130606
  3. PEGASYS [Suspect]
     Indication: HEPATITIS C
     Dosage: 180 ?G, QW
     Route: 058
     Dates: start: 20130605

REACTIONS (12)
  - Headache [Recovered/Resolved]
  - Photosensitivity reaction [Not Recovered/Not Resolved]
  - Lethargy [Not Recovered/Not Resolved]
  - Injection site bruising [Not Recovered/Not Resolved]
  - Contusion [Not Recovered/Not Resolved]
  - Incorrect dose administered [Not Recovered/Not Resolved]
  - Frequent bowel movements [Not Recovered/Not Resolved]
  - Nausea [Not Recovered/Not Resolved]
  - Rash pruritic [Not Recovered/Not Resolved]
  - Vomiting [Not Recovered/Not Resolved]
  - Proctalgia [Not Recovered/Not Resolved]
  - Anorectal discomfort [Not Recovered/Not Resolved]
